FAERS Safety Report 7512359-7 (Version None)
Quarter: 2011Q2

REPORT INFORMATION
  Report Type: 
  Country: None (occurrence: None)
  Receive Date: 20110531
  Receipt Date: 20110516
  Transmission Date: 20111010
  Serious: Yes (Hospitalization, Other)
  Sender: FDA-Public Use
  Company Number: PHHY2011US03293

PATIENT
  Sex: Female

DRUGS (3)
  1. PERCODAN-DEMI [Concomitant]
  2. FEMARA [Suspect]
  3. METOPROLOL TARTRATE [Concomitant]

REACTIONS (10)
  - DYSPNOEA EXERTIONAL [None]
  - NAUSEA [None]
  - DIVERTICULUM [None]
  - THROMBOSIS [None]
  - ABDOMINAL DISTENSION [None]
  - WEIGHT DECREASED [None]
  - PULMONARY EMBOLISM [None]
  - RENAL CYST [None]
  - ABDOMINAL PAIN [None]
  - FIBRIN D DIMER INCREASED [None]
